FAERS Safety Report 10404260 (Version 1)
Quarter: 2014Q1

REPORT INFORMATION
  Report Type: Spontaneous
  Country: US (occurrence: None)
  Receive Date: 20140214
  Receipt Date: 20140214
  Transmission Date: 20141002
  Serious: No
  Sender: FDA-Public Use
  Company Number: A-US2014-93548

PATIENT
  Age: 77 Year
  Sex: Female

DRUGS (3)
  1. OPSUMIT [Suspect]
     Indication: CARDIAC SEPTAL DEFECT
     Route: 048
     Dates: start: 20140109
  2. COUMADIN (WARFARIN SODIUM) [Concomitant]
  3. ADCIRCA (TADALAFIL) [Concomitant]

REACTIONS (1)
  - Muscle spasms [None]
